FAERS Safety Report 8516973 (Version 3)
Quarter: 2015Q1

REPORT INFORMATION
  Report Type: Spontaneous
  Country: JP (occurrence: JP)
  Receive Date: 20120417
  Receipt Date: 20150325
  Transmission Date: 20150721
  Serious: Yes (Other)
  Sender: FDA-Public Use
  Company Number: JP-PFIZER INC-2012025217

PATIENT
  Age: 69 Year
  Sex: Male
  Weight: 78 kg

DRUGS (27)
  1. ZYVOX [Suspect]
     Active Substance: LINEZOLID
     Indication: MEDIASTINITIS
     Dosage: 600 MG, 2X/DAY
     Route: 041
     Dates: start: 20110207, end: 20110302
  2. CEFOTIAM HYDROCHLORIDE [Concomitant]
     Active Substance: CEFOTIAM HYDROCHLORIDE
     Indication: MEDIASTINITIS
     Dosage: 1 G, 2X/DAY
     Route: 041
     Dates: start: 20110207, end: 20110221
  3. ALDACTONE [Concomitant]
     Active Substance: SPIRONOLACTONE
     Dosage: 50 MG, UNK
     Route: 048
     Dates: end: 20110302
  4. MIYA-BM [Concomitant]
     Active Substance: CLOSTRIDIUM BUTYRICUM SPORES STRAIN M-55
     Dosage: 120 MG, UNK
     Dates: start: 20110203, end: 20110303
  5. WARFARIN [Interacting]
     Active Substance: WARFARIN
     Dosage: 5.5 MG, UNK
     Route: 048
     Dates: start: 20110210, end: 20110210
  6. CEFAZOLIN [Concomitant]
     Active Substance: CEFAZOLIN
     Dosage: 3 G, UNK
     Dates: start: 20110203, end: 20110203
  7. LASIX [Concomitant]
     Active Substance: FUROSEMIDE
     Dosage: 20 MG, UNK
     Dates: start: 20110202, end: 20110219
  8. WARFARIN [Interacting]
     Active Substance: WARFARIN
     Dosage: 3 MG, UNK
     Route: 048
     Dates: start: 20110206, end: 20110209
  9. TENORMIN [Concomitant]
     Active Substance: ATENOLOL
     Dosage: 25 MG, UNK
  10. OLMETEC [Concomitant]
     Active Substance: OLMESARTAN MEDOXOMIL
     Dosage: 20 MG, UNK
  11. WARFARIN [Interacting]
     Active Substance: WARFARIN
     Dosage: 3 MG, UNK
     Route: 048
     Dates: start: 20110211, end: 20110310
  12. LASIX [Concomitant]
     Active Substance: FUROSEMIDE
     Dosage: 40 MG, UNK
     Dates: end: 20110201
  13. ALENDRONATE SODIUM. [Concomitant]
     Active Substance: ALENDRONATE SODIUM
     Dosage: 5 MG, UNK
  14. MIGLITOL. [Concomitant]
     Active Substance: MIGLITOL
     Dosage: 150 MG, UNK
     Dates: start: 20110208
  15. ZYVOX [Interacting]
     Active Substance: LINEZOLID
     Dosage: 600 MG, 1X/DAY
     Route: 041
     Dates: start: 20110303, end: 20110303
  16. PARIET [Concomitant]
     Active Substance: RABEPRAZOLE SODIUM
     Dosage: 10 MG, UNK
  17. ACTOS [Concomitant]
     Active Substance: PIOGLITAZONE HYDROCHLORIDE
     Dosage: 25 MG, UNK
     Dates: start: 20110208
  18. WARFARIN [Interacting]
     Active Substance: WARFARIN
     Dosage: 4 MG, UNK
     Route: 048
     Dates: start: 20110315
  19. CEFAZOLIN [Concomitant]
     Active Substance: CEFAZOLIN
     Dosage: 1 G, UNK
     Dates: start: 20110207, end: 20110207
  20. WARFARIN [Interacting]
     Active Substance: WARFARIN
     Dosage: UNK
     Route: 048
     Dates: start: 20110128, end: 20110203
  21. CEFAZOLIN [Concomitant]
     Active Substance: CEFAZOLIN
     Dosage: 2 G, UNK
     Dates: start: 20110204, end: 20110206
  22. NORVASC [Concomitant]
     Active Substance: AMLODIPINE BESYLATE
     Dosage: 5 MG, UNK
     Route: 048
  23. AMARYL [Concomitant]
     Active Substance: GLIMEPIRIDE
     Dosage: 2 G, UNK
  24. SENNA [Concomitant]
     Active Substance: SENNA LEAF\SENNOSIDES\SENNOSIDES A AND B
     Dosage: 0.5 G, UNK
     Dates: end: 20110209
  25. WARFARIN [Interacting]
     Active Substance: WARFARIN
     Dosage: 3.5 MG, UNK
     Route: 048
     Dates: start: 20110311, end: 20110314
  26. PREDONINE [Concomitant]
     Active Substance: PREDNISOLONE\PREDNISOLONE ACETATE\PREDNISOLONE SODIUM SUCCINATE
     Dosage: 5 MG, UNK
  27. AZUCURENIN S [Concomitant]
     Active Substance: GLUTAMINE
     Dosage: 2 G, UNK

REACTIONS (3)
  - Off label use [Unknown]
  - Drug interaction [Recovered/Resolved]
  - International normalised ratio increased [Recovered/Resolved]

NARRATIVE: CASE EVENT DATE: 20110128
